FAERS Safety Report 5147587-1 (Version None)
Quarter: 2006Q4

REPORT INFORMATION
  Report Type: 
  Country: None (occurrence: None)
  Receive Date: 20061106
  Receipt Date: 20061024
  Transmission Date: 20070319
  Serious: Yes (Other)
  Sender: FDA-Public Use
  Company Number: 2006119079

PATIENT
  Sex: Female

DRUGS (1)
  1. BENGAY PAIN RELIEVING PATCH (MENTHOL) [Suspect]
     Indication: MUSCULOSKELETAL PAIN
     Dosage: 1 PATCH FOR ABOUT 3 1/2 HOURS ONCE , TOPICAL
     Route: 062

REACTIONS (3)
  - CAUSTIC INJURY [None]
  - PAIN [None]
  - THERMAL BURN [None]
